FAERS Safety Report 18710763 (Version 10)
Quarter: 2021Q3

REPORT INFORMATION
  Report Type: Report from Study
  Country: GB (occurrence: GB)
  Receive Date: 20210107
  Receipt Date: 20210727
  Transmission Date: 20211014
  Serious: Yes (Hospitalization, Other)
  Sender: FDA-Public Use
  Company Number: GB-TAKEDA-2020TUS049399

PATIENT
  Age: 87 Year
  Sex: Female

DRUGS (2)
  1. IXAZOMIB [Suspect]
     Active Substance: IXAZOMIB
     Indication: PLASMA CELL MYELOMA
     Dosage: 2.3 MILLIGRAM
     Route: 048
     Dates: start: 20200918
  2. IXAZOMIB [Suspect]
     Active Substance: IXAZOMIB
     Dosage: 2.3 MILLIGRAM, Q2WEEKS
     Route: 048
     Dates: start: 20210210, end: 20210704

REACTIONS (37)
  - Abdominal distension [Unknown]
  - Pain [Unknown]
  - Chest pain [Recovered/Resolved]
  - Skin fissures [Recovered/Resolved]
  - Anxiety [Unknown]
  - Headache [Unknown]
  - Dyspnoea [Unknown]
  - Loss of personal independence in daily activities [Unknown]
  - Confusional state [Unknown]
  - Disorientation [Unknown]
  - Oxygen saturation decreased [Unknown]
  - Facial paralysis [Unknown]
  - Fall [Unknown]
  - Hypoaesthesia oral [Unknown]
  - Hypoaesthesia [Unknown]
  - Decreased appetite [Not Recovered/Not Resolved]
  - Dry skin [Unknown]
  - Gait disturbance [Unknown]
  - Dry eye [Unknown]
  - Lip swelling [Not Recovered/Not Resolved]
  - Increased appetite [Unknown]
  - Amnesia [Unknown]
  - Urinary incontinence [Unknown]
  - Weight decreased [Unknown]
  - Erythema [Unknown]
  - Fatigue [Not Recovered/Not Resolved]
  - Brain neoplasm [Unknown]
  - Malaise [Unknown]
  - Neuropathy peripheral [Not Recovered/Not Resolved]
  - Dry mouth [Unknown]
  - Speech disorder [Unknown]
  - Back pain [Recovered/Resolved]
  - Nausea [Recovering/Resolving]
  - Spinal cord compression [Unknown]
  - Balance disorder [Unknown]
  - Constipation [Unknown]
  - Vomiting [Unknown]

NARRATIVE: CASE EVENT DATE: 202009
